FAERS Safety Report 19727824 (Version 1)
Quarter: 2021Q3

REPORT INFORMATION
  Report Type: Spontaneous
  Country: US (occurrence: US)
  Receive Date: 20210820
  Receipt Date: 20210820
  Transmission Date: 20211014
  Serious: Yes (Other)
  Sender: FDA-Public Use
  Company Number: None

PATIENT
  Age: 82 Year
  Sex: Female
  Weight: 63.05 kg

DRUGS (14)
  1. PRAMIPEXOLE. [Concomitant]
     Active Substance: PRAMIPEXOLE
  2. BENZONATATE. [Concomitant]
     Active Substance: BENZONATATE
  3. PRASUGREL 10 MG [Concomitant]
     Active Substance: PRASUGREL
  4. GABAPENTIN 400 MG [Concomitant]
     Active Substance: GABAPENTIN
  5. TRAZODONE [Concomitant]
     Active Substance: TRAZODONE HYDROCHLORIDE
  6. ONDANSETRON [Concomitant]
     Active Substance: ONDANSETRON
  7. SPIRONOLACTONE 25 MG [Concomitant]
     Active Substance: SPIRONOLACTONE
  8. ALLOPURINOL 100 MG [Concomitant]
     Active Substance: ALLOPURINOL
  9. LANTUS [Concomitant]
     Active Substance: INSULIN GLARGINE
  10. REGEN?COV [Suspect]
     Active Substance: CASIRIVIMAB\IMDEVIMAB
     Indication: COVID-19
     Dates: start: 20210818, end: 20210818
  11. TRAMADOL 50 MG [Concomitant]
     Active Substance: TRAMADOL
  12. ATORVASTATIN 80 MG [Concomitant]
     Active Substance: ATORVASTATIN
  13. OMEPRAZOLE. [Concomitant]
     Active Substance: OMEPRAZOLE
  14. SERTRALINE [Concomitant]
     Active Substance: SERTRALINE HYDROCHLORIDE

REACTIONS (6)
  - Anxiety [None]
  - Troponin increased [None]
  - Infusion related reaction [None]
  - Tremor [None]
  - Chest pain [None]
  - Dyspnoea [None]

NARRATIVE: CASE EVENT DATE: 20210818
